FAERS Safety Report 6409129-X (Version None)
Quarter: 2009Q4

REPORT INFORMATION
  Report Type: 
  Country: None (occurrence: None)
  Receive Date: 20091021
  Receipt Date: 20091007
  Transmission Date: 20100525
  Serious: Yes (Hospitalization)
  Sender: FDA-Public Use
  Company Number: PHHY2009IE43503

PATIENT
  Sex: Female

DRUGS (3)
  1. DIOVAN HCT [Suspect]
     Indication: BLOOD PRESSURE
     Dosage: UNK
  2. DIOVAN [Suspect]
     Dosage: UNK
     Dates: end: 20081230
  3. NATRILIX [Concomitant]

REACTIONS (1)
  - HYPONATRAEMIA [None]
